FAERS Safety Report 8707670 (Version 3)
Quarter: 2014Q2

REPORT INFORMATION
  Report Type: Spontaneous
  Country: CA (occurrence: CA)
  Receive Date: 20120806
  Receipt Date: 20140519
  Transmission Date: 20141212
  Serious: Yes (Death, Hospitalization, Other)
  Sender: FDA-Public Use
  Company Number: US-MERCK-1207USA011518

PATIENT
  Sex: Male
  Weight: 94 kg

DRUGS (15)
  1. VICTRELIS [Suspect]
     Dosage: 2400 MG, QD
     Route: 048
  2. RIBAVIRIN [Suspect]
     Dosage: 1200 MG
     Route: 048
  3. RIBAVIRIN [Suspect]
     Dosage: 2400 MG
     Route: 048
  4. RIBAVIRIN [Suspect]
     Dosage: 200 MG, UNK
     Route: 048
  5. RIBAVIRIN [Suspect]
     Dosage: 1000 MG
     Route: 048
  6. RIBAVIRIN [Suspect]
     Dosage: 800 MG, UNK
     Route: 048
  7. RIBAVIRIN [Suspect]
     Dosage: 600 MG, UNK
     Route: 048
  8. RIBAVIRIN [Suspect]
     Dosage: 400 MG, UNK
     Route: 048
  9. PEGASYS [Suspect]
     Dosage: 180 MICROGRAM, QW
     Route: 058
  10. PEGASYS [Suspect]
     Dosage: 90 MICROGRAM, QW
     Route: 058
  11. FUROSEMIDE [Concomitant]
     Dosage: VARYING40-80 MG
     Route: 065
  12. SPIRONOLACTONE [Concomitant]
     Dosage: 100 MG, UNK
     Route: 048
  13. PRAVASTATIN SODIUM [Concomitant]
     Route: 065
  14. ATENOLOL [Concomitant]
     Route: 065
  15. SULFASALAZINE [Concomitant]
     Route: 065

REACTIONS (7)
  - Splenomegaly [Fatal]
  - Ascites [Fatal]
  - Hepatic cirrhosis [Fatal]
  - Condition aggravated [Fatal]
  - Vasculitis [Fatal]
  - Haemolytic anaemia [Fatal]
  - Hepatic cirrhosis [Fatal]
